FAERS Safety Report 25570194 (Version 1)
Quarter: 2025Q3

REPORT INFORMATION
  Report Type: Spontaneous
  Country: CA (occurrence: CA)
  Receive Date: 20250717
  Receipt Date: 20250717
  Transmission Date: 20251020
  Serious: Yes (Other)
  Sender: CELLTRION
  Company Number: CA-PFIZER INC-202500139850

PATIENT

DRUGS (10)
  1. INFLECTRA [Suspect]
     Active Substance: INFLIXIMAB-DYYB
     Route: 042
     Dates: start: 20250414
  2. GANCICLOVIR [Concomitant]
     Active Substance: GANCICLOVIR
  3. IRON [Concomitant]
     Active Substance: IRON
  4. LACTASE [Concomitant]
     Active Substance: LACTASE
  5. NITROFURANTOIN [Concomitant]
     Active Substance: NITROFURANTOIN
  6. OLANZAPINE [Concomitant]
     Active Substance: OLANZAPINE
  7. PANTOPRAZOLE SODIUM [Concomitant]
     Active Substance: PANTOPRAZOLE SODIUM
     Route: 048
  8. QUETIAPINE [Concomitant]
     Active Substance: QUETIAPINE
  9. VALTREX [Concomitant]
     Active Substance: VALACYCLOVIR HYDROCHLORIDE
  10. VALACYCLOVIR [Concomitant]
     Active Substance: VALACYCLOVIR HYDROCHLORIDE

REACTIONS (1)
  - Abortion spontaneous [Unknown]

NARRATIVE: CASE EVENT DATE: 20250626
